FAERS Safety Report 19460344 (Version 2)
Quarter: 2021Q3

REPORT INFORMATION
  Report Type: Report from Study
  Country: GB (occurrence: GB)
  Receive Date: 20210625
  Receipt Date: 20210727
  Transmission Date: 20211014
  Serious: Yes (Hospitalization, Other)
  Sender: FDA-Public Use
  Company Number: GB-ASPEN-GLO2014GB006107

PATIENT

DRUGS (20)
  1. AVASTIN [Suspect]
     Active Substance: BEVACIZUMAB
     Indication: GASTRIC CANCER
     Dosage: 743 MG(LAST DOSE ADMINISTRED ON 06 MAR 2012)
     Route: 042
     Dates: start: 20120124, end: 20120306
  2. EMEND [Suspect]
     Active Substance: APREPITANT
     Indication: GASTRIC CANCER
     Dosage: DATE OF LAST DOSE: 06/MAR/2012
     Route: 048
     Dates: start: 20120124, end: 20120306
  3. SIMVASTATIN. [Concomitant]
     Active Substance: SIMVASTATIN
     Indication: PRODUCT USED FOR UNKNOWN INDICATION
     Dosage: 80 MG
     Route: 048
     Dates: start: 200503
  4. AVASTIN [Suspect]
     Active Substance: BEVACIZUMAB
     Dosage: 113 MG
     Route: 042
     Dates: start: 20120124, end: 20120306
  5. EMEND [Suspect]
     Active Substance: APREPITANT
     Dosage: UNK
     Route: 065
  6. ONDANSETRON [Suspect]
     Active Substance: ONDANSETRON
     Dosage: UNK
     Route: 065
  7. EPIRUBICIN [Suspect]
     Active Substance: EPIRUBICIN
     Dosage: UNK
     Route: 042
     Dates: start: 20120124
  8. FUROSEMIDE. [Suspect]
     Active Substance: FUROSEMIDE
     Dosage: UNK
     Route: 065
  9. AVASTIN [Suspect]
     Active Substance: BEVACIZUMAB
     Dosage: UNK
     Route: 065
  10. AVASTIN [Suspect]
     Active Substance: BEVACIZUMAB
     Dosage: 113 MG
     Route: 042
  11. FUROSEMIDE. [Suspect]
     Active Substance: FUROSEMIDE
     Indication: GASTRIC CANCER
     Dosage: DATE OF LAST DOSE: 06/MAR/2012
     Route: 048
     Dates: start: 20120124, end: 20120306
  12. DEXAMETHASONE. [Suspect]
     Active Substance: DEXAMETHASONE
     Indication: GASTRIC CANCER
     Dosage: DATE OF LAST DOSE: 06/MAR/2012
     Route: 048
     Dates: start: 20120124, end: 20120309
  13. DEXAMETHASONE. [Suspect]
     Active Substance: DEXAMETHASONE
     Dosage: UNK
     Route: 048
     Dates: start: 20120124
  14. EPIRUBICIN [Suspect]
     Active Substance: EPIRUBICIN
     Indication: GASTRIC CANCER
     Dosage: 95 MG,DATE OF MOST RECENT ADMINISTRATION: 06/MAR/2012
     Route: 042
     Dates: start: 20120124, end: 20210306
  15. EPIRUBICIN [Suspect]
     Active Substance: EPIRUBICIN
     Dosage: UNK
     Route: 042
     Dates: start: 20120124, end: 20120306
  16. ONDANSETRON [Suspect]
     Active Substance: ONDANSETRON
     Indication: GASTRIC CANCER
     Dosage: DATE OF LAST DOSE: 06/MAR/2012
     Route: 048
     Dates: start: 20120124, end: 20120309
  17. XELODA [Suspect]
     Active Substance: CAPECITABINE
     Indication: GASTRIC CANCER
     Dosage: 2500 MG, QD (DATE OF MOST RECENT ADMINISTRATION: 27
     Route: 048
     Dates: start: 20120124, end: 20120327
  18. LISINOPRIL. [Concomitant]
     Active Substance: LISINOPRIL
     Indication: PRODUCT USED FOR UNKNOWN INDICATION
     Dosage: 5 MG
     Route: 065
     Dates: start: 200705
  19. DEXAMETHASONE. [Suspect]
     Active Substance: DEXAMETHASONE
     Dosage: UNK
     Route: 065
  20. CISPLATIN. [Suspect]
     Active Substance: CISPLATIN
     Indication: GASTRIC CANCER
     Dosage: 113 MG
     Route: 042
     Dates: start: 20120124

REACTIONS (4)
  - Vomiting [Recovered/Resolved]
  - Diarrhoea [Recovered/Resolved]
  - Febrile neutropenia [Recovered/Resolved]
  - Abdominal sepsis [Recovered/Resolved]

NARRATIVE: CASE EVENT DATE: 20120313
